FAERS Safety Report 5099111-X (Version None)
Quarter: 2006Q3

REPORT INFORMATION
  Report Type: 
  Country: None (occurrence: None)
  Receive Date: 20060731
  Receipt Date: 20060204
  Transmission Date: 20061208
  Serious: Yes (Hospitalization)
  Sender: FDA-Public Use
  Company Number: 219189

PATIENT
  Age: 70 Year
  Sex: Male

DRUGS (5)
  1. RITUXAN [Suspect]
     Indication: NON-HODGKIN'S LYMPHOMA
     Dates: start: 20050921
  2. IFOSFAMIDE [Concomitant]
  3. CARBOPLATIN [Concomitant]
  4. ETOPOSIDE [Concomitant]
  5. NEULASTA [Concomitant]

REACTIONS (1)
  - PAIN IN EXTREMITY [None]
